FAERS Safety Report 10962195 (Version 1)
Quarter: 2015Q1

REPORT INFORMATION
  Report Type: Spontaneous
  Country: US (occurrence: US)
  Receive Date: 20150327
  Receipt Date: 20150327
  Transmission Date: 20150721
  Serious: No
  Sender: FDA-Public Use
  Company Number: US-PFIZER INC-2015104386

PATIENT
  Sex: Female

DRUGS (1)
  1. PROVERA [Suspect]
     Active Substance: MEDROXYPROGESTERONE ACETATE
     Dosage: UNK

REACTIONS (6)
  - Back pain [Unknown]
  - Pruritus [Unknown]
  - Dyspepsia [Unknown]
  - Chest pain [Unknown]
  - Muscle spasms [Unknown]
  - Pain in extremity [Unknown]
